FAERS Safety Report 7432920-8 (Version None)
Quarter: 2011Q2

REPORT INFORMATION
  Report Type: 
  Country: None (occurrence: None)
  Receive Date: 20110422
  Receipt Date: 20110419
  Transmission Date: 20111010
  Serious: No
  Sender: FDA-Public Use
  Company Number: US-PFIZER INC-2010125747

PATIENT
  Sex: Female
  Weight: 81 kg

DRUGS (12)
  1. TOVIAZ [Suspect]
     Indication: HYPERTONIC BLADDER
     Dosage: 8 MG, 1X/DAY
     Route: 048
     Dates: start: 20100901, end: 20100928
  2. DITROPAN [Suspect]
     Dosage: UNK
  3. FISH OIL [Concomitant]
     Dosage: 1200 MG, UNK
  4. VESICARE [Suspect]
  5. CHONDROITIN/GLUCOSAMINE [Concomitant]
     Dosage: UNK
  6. TROSPIUM CHLORIDE [Suspect]
  7. ENALAPRIL [Concomitant]
     Indication: HYPERTENSION
     Dosage: UNK, ONE TABLET OF 10 MG IN MORNING AND HALF TABLET OF 10 MG IN NIGHT
     Route: 048
  8. CALCIUM [Concomitant]
     Dosage: 600 MG, UNK
  9. TOFRANIL [Suspect]
  10. DARIFENACIN [Suspect]
  11. AMLODIPINE BESILATE [Concomitant]
     Indication: HYPERTENSION
     Dosage: 5 MG, 1X/DAY
     Route: 048
  12. ACETYLSALICYLIC ACID [Concomitant]
     Indication: CARDIOVASCULAR EVENT PROPHYLAXIS
     Dosage: 81 MG, 1X/DAY
     Route: 048

REACTIONS (3)
  - NAUSEA [None]
  - GASTROOESOPHAGEAL REFLUX DISEASE [None]
  - DYSPEPSIA [None]
